FAERS Safety Report 9382316 (Version 1)
Quarter: 2013Q3

REPORT INFORMATION
  Report Type: Spontaneous
  Country: US (occurrence: US)
  Receive Date: 20130703
  Receipt Date: 20130703
  Transmission Date: 20140515
  Serious: No
  Sender: FDA-Public Use
  Company Number: US-ASTRAZENECA-2013SE42587

PATIENT
  Age: 74 Year
  Sex: Female
  Weight: 54.4 kg

DRUGS (6)
  1. PRILOSEC OTC [Suspect]
     Route: 048
  2. CRESTOR [Suspect]
     Route: 048
     Dates: end: 201210
  3. DIOVAN [Concomitant]
  4. FISH OIL [Concomitant]
  5. VITAMIN D [Concomitant]
  6. CALCIUM [Concomitant]

REACTIONS (5)
  - Diarrhoea [Not Recovered/Not Resolved]
  - Colitis microscopic [Unknown]
  - Arthralgia [Recovering/Resolving]
  - Arthralgia [Unknown]
  - Intentional drug misuse [Unknown]
